FAERS Safety Report 19039515 (Version 4)
Quarter: 2021Q2

REPORT INFORMATION
  Report Type: Other
  Country: IT (occurrence: IT)
  Receive Date: 20210322
  Receipt Date: 20210625
  Transmission Date: 20210717
  Serious: Yes (Death)
  Sender: FDA-Public Use
  Company Number: IT-ROCHE-2790550

PATIENT
  Age: 69 Year
  Sex: Male
  Weight: 78 kg

DRUGS (9)
  1. OCRELIZUMAB. [Suspect]
     Active Substance: OCRELIZUMAB
     Indication: PRIMARY PROGRESSIVE MULTIPLE SCLEROSIS
     Route: 042
     Dates: end: 20201026
  2. COTAREG [Concomitant]
     Active Substance: HYDROCHLOROTHIAZIDE\VALSARTAN
     Dosage: 1 TABLET IN THE MORNING
  3. ESKIM [Concomitant]
     Active Substance: OMEGA-3 FATTY ACIDS
     Dosage: 1 TABLET AT LUNCH
  4. OCRELIZUMAB. [Suspect]
     Active Substance: OCRELIZUMAB
     Route: 042
     Dates: end: 202101
  5. 4?AMINOPYRIDINE [Concomitant]
     Active Substance: DALFAMPRIDINE
     Route: 048
  6. TAREG [Concomitant]
     Active Substance: VALSARTAN
     Dosage: 1 TABLET IN THE EVENING
  7. PRADIF [Concomitant]
     Active Substance: TAMSULOSIN HYDROCHLORIDE
     Dosage: 1 TABLET IN THE MORNING
  8. LYRICA [Concomitant]
     Active Substance: PREGABALIN
     Dosage: 2 TABLETS THREE TIMES A DAY
  9. CRESTOR [Concomitant]
     Active Substance: ROSUVASTATIN CALCIUM
     Dosage: 1 TABLET IN THE EVENING

REACTIONS (2)
  - COVID-19 pneumonia [Fatal]
  - Respiratory failure [Fatal]

NARRATIVE: CASE EVENT DATE: 20210210
